FAERS Safety Report 9733049 (Version 2)
Quarter: 2014Q1

REPORT INFORMATION
  Report Type: Spontaneous
  Country: AT (occurrence: AT)
  Receive Date: 20131205
  Receipt Date: 20140228
  Transmission Date: 20141002
  Serious: Yes (Other)
  Sender: FDA-Public Use
  Company Number: AT-BRACCO-000132

PATIENT
  Age: 73 Year
  Sex: Male
  Weight: 79 kg

DRUGS (7)
  1. PROHANCE [Suspect]
     Indication: NUCLEAR MAGNETIC RESONANCE IMAGING
     Route: 042
     Dates: start: 20131121, end: 20131121
  2. MADOPAR [Concomitant]
  3. PRAXITEN [Concomitant]
  4. SEROPRAM [Concomitant]
  5. STALEVO [Concomitant]
  6. MIRTAZAPIN [Concomitant]
  7. BLOOD TRANSFUSION, AUXILIARY PRODUCTS [Concomitant]
     Dates: start: 20131121

REACTIONS (3)
  - Circulatory collapse [Recovered/Resolved]
  - Depressed level of consciousness [Recovered/Resolved]
  - Gaze palsy [Recovered/Resolved]
